FAERS Safety Report 25056825 (Version 1)
Quarter: 2025Q1

REPORT INFORMATION
  Report Type: Report from Study
  Country: US (occurrence: US)
  Receive Date: 20250310
  Receipt Date: 20250310
  Transmission Date: 20250409
  Serious: Yes (Hospitalization)
  Sender: ABBVIE
  Company Number: US-ABBVIE-6165263

PATIENT
  Age: 66 Year
  Sex: Female

DRUGS (1)
  1. SKYRIZI [Suspect]
     Active Substance: RISANKIZUMAB-RZAA
     Indication: Psoriasis
     Route: 058
     Dates: start: 202310

REACTIONS (3)
  - Wound infection [Recovering/Resolving]
  - Skin laceration [Recovering/Resolving]
  - Poor peripheral circulation [Recovering/Resolving]

NARRATIVE: CASE EVENT DATE: 20241201
